FAERS Safety Report 17507772 (Version 3)
Quarter: 2020Q2

REPORT INFORMATION
  Report Type: Spontaneous
  Country: CA (occurrence: CA)
  Receive Date: 20200305
  Receipt Date: 20200514
  Transmission Date: 20200713
  Serious: Yes (Hospitalization)
  Sender: FDA-Public Use
  Company Number: CA-CELLTRION INC.-2018CA025152

PATIENT

DRUGS (12)
  1. INFLECTRA [Suspect]
     Active Substance: INFLIXIMAB-DYYB
     Indication: CROHN^S DISEASE
     Dosage: 1000 MG, EVERY 0,2,6 WEEKS THEN EVERY 8 WEEKS [HOSPITAL START]
     Route: 042
     Dates: start: 20181231
  2. INFLECTRA [Suspect]
     Active Substance: INFLIXIMAB-DYYB
     Dosage: 1000 MG, EVERY 0,2,6 WEEKS THEN EVERY 8 WEEKS [HOSPITAL START]
     Route: 042
     Dates: start: 20190410
  3. INFLECTRA [Suspect]
     Active Substance: INFLIXIMAB-DYYB
     Dosage: 1000 MG, EVERY 0,2,6 WEEKS THEN EVERY 8 WEEKS [HOSPITAL START]
     Route: 042
     Dates: start: 20190926
  4. SOLU-MEDROL [Concomitant]
     Active Substance: METHYLPREDNISOLONE SODIUM SUCCINATE
     Dosage: UNK
     Dates: start: 20181227
  5. POTASSIUM [Concomitant]
     Active Substance: POTASSIUM
     Dosage: UNK
     Route: 065
  6. INFLECTRA [Suspect]
     Active Substance: INFLIXIMAB-DYYB
     Dosage: 1000 MG, EVERY 0,2,6 WEEKS THEN EVERY 8 WEEKS [HOSPITAL START]
     Route: 042
     Dates: start: 20190116
  7. PANTOLOC [PANTOPRAZOLE] [Concomitant]
     Active Substance: PANTOPRAZOLE SODIUM
     Dosage: 40 MG, 2X/DAY (Q 12 H)
     Route: 048
  8. INFLECTRA [Suspect]
     Active Substance: INFLIXIMAB-DYYB
     Dosage: 1000 MG, EVERY 0,2,6 WEEKS THEN EVERY 8 WEEKS [HOSPITAL START]
     Route: 042
     Dates: start: 20190221
  9. PREDNISONE. [Concomitant]
     Active Substance: PREDNISONE
     Dosage: 400 MG, UNK
     Dates: start: 20190101
  10. PREDNISONE. [Concomitant]
     Active Substance: PREDNISONE
     Dosage: 40 MG, UNK (TAPER)
  11. PREDNISONE. [Concomitant]
     Active Substance: PREDNISONE
     Dosage: 35 MG, TAPERING
  12. INFLECTRA [Suspect]
     Active Substance: INFLIXIMAB-DYYB
     Dosage: 1000 MG, EVERY 0,2,6 WEEKS THEN EVERY 8 WEEKS [HOSPITAL START]
     Route: 042
     Dates: start: 20190731

REACTIONS (6)
  - Off label use [Unknown]
  - Condition aggravated [Unknown]
  - Enteritis [Not Recovered/Not Resolved]
  - Product dose omission [Unknown]
  - Malaise [Unknown]
  - Headache [Unknown]

NARRATIVE: CASE EVENT DATE: 20181231
